FAERS Safety Report 6359860-X (Version None)
Quarter: 2009Q3

REPORT INFORMATION
  Report Type: 
  Country: None (occurrence: None)
  Receive Date: 20090917
  Receipt Date: 20090907
  Transmission Date: 20100115
  Serious: Yes (Death)
  Sender: FDA-Public Use
  Company Number: B0592601A

PATIENT
  Sex: Male
  Weight: 65 kg

DRUGS (5)
  1. ARIXTRA [Suspect]
     Indication: DRUG USE FOR UNKNOWN INDICATION
     Route: 058
     Dates: start: 20090307
  2. NORSET [Concomitant]
     Indication: DRUG USE FOR UNKNOWN INDICATION
     Route: 065
  3. ARANESP [Concomitant]
     Indication: DRUG USE FOR UNKNOWN INDICATION
     Route: 065
  4. ORAMORPH SR [Concomitant]
     Indication: DRUG USE FOR UNKNOWN INDICATION
     Route: 065
  5. DURAGESIC-100 [Concomitant]
     Indication: DRUG USE FOR UNKNOWN INDICATION
     Route: 065

REACTIONS (4)
  - CEREBRAL HAEMORRHAGE [None]
  - INCORRECT DRUG ADMINISTRATION DURATION [None]
  - PLATELET COUNT DECREASED [None]
  - RENAL FAILURE [None]
